FAERS Safety Report 5802746-7 (Version None)
Quarter: 2008Q3

REPORT INFORMATION
  Report Type: 
  Country: None (occurrence: None)
  Receive Date: 20080708
  Receipt Date: 20080625
  Transmission Date: 20090109
  Serious: Yes (Other)
  Sender: FDA-Public Use
  Company Number: FR-NOVOPROD-275958

PATIENT
  Age: 45 Year
  Sex: Female

DRUGS (2)
  1. NOVORAPID [Suspect]
     Indication: TYPE 1 DIABETES MELLITUS
  2. LEVEMIR [Suspect]
     Indication: TYPE 1 DIABETES MELLITUS

REACTIONS (1)
  - GRANULOMA SKIN [None]
